FAERS Safety Report 23145443 (Version 1)
Quarter: 2023Q4

REPORT INFORMATION
  Report Type: Spontaneous
  Country: US (occurrence: None)
  Receive Date: 20231103
  Receipt Date: 20231103
  Transmission Date: 20240110
  Serious: Yes (Other)
  Sender: FDA-Public Use
  Company Number: None

PATIENT
  Age: 63 Year
  Sex: Female
  Weight: 127.35 kg

DRUGS (7)
  1. SEMAGLUTIDE [Suspect]
     Active Substance: SEMAGLUTIDE
     Indication: Obesity
     Dosage: OTHER FREQUENCY : WEEKLY;?
     Route: 058
     Dates: start: 20220318, end: 20231006
  2. THIAMINE [Concomitant]
     Active Substance: THIAMINE
  3. HYDROCHLOROTHIAZIDE [Concomitant]
     Active Substance: HYDROCHLOROTHIAZIDE
  4. lovenox (intermittent only) [Concomitant]
  5. CARAFATE [Concomitant]
     Active Substance: SUCRALFATE
  6. ERGOCALCIFEROL [Concomitant]
     Active Substance: ERGOCALCIFEROL
  7. VITAMIN B12 [Concomitant]
     Active Substance: CYANOCOBALAMIN

REACTIONS (5)
  - Follicular thyroid cancer [None]
  - Therapy change [None]
  - Therapy cessation [None]
  - Weight decreased [None]
  - Treatment noncompliance [None]

NARRATIVE: CASE EVENT DATE: 20231006
